FAERS Safety Report 9300828 (Version 1)
Quarter: 2013Q2

REPORT INFORMATION
  Report Type: Spontaneous
  Country: DE (occurrence: DE)
  Receive Date: 20130521
  Receipt Date: 20130521
  Transmission Date: 20140414
  Serious: Yes (Other)
  Sender: FDA-Public Use
  Company Number: PHHY2013DE048753

PATIENT
  Age: 48 Year
  Sex: Female
  Weight: 74 kg

DRUGS (2)
  1. QUETIAPINE [Suspect]
     Indication: BIPOLAR DISORDER
     Dosage: 500 MG, QD
  2. CITALOPRAM [Concomitant]
     Dosage: 40 MG, QD

REACTIONS (4)
  - Sleep disorder [Unknown]
  - Food craving [Recovered/Resolved]
  - Weight increased [Recovering/Resolving]
  - Blood cholesterol increased [Unknown]
